FAERS Safety Report 8727127 (Version 2)
Quarter: 2012Q4

REPORT INFORMATION
  Report Type: Report from Study
  Country: ZA (occurrence: ZA)
  Receive Date: 20120816
  Receipt Date: 20120913
  Transmission Date: 20130627
  Serious: Yes (Death)
  Sender: FDA-Public Use
  Company Number: ZA-ROCHE-1101604

PATIENT
  Sex: Male

DRUGS (4)
  1. CELLCEPT [Suspect]
     Indication: PRODUCT USED FOR UNKNOWN INDICATION
  2. VALCYTE [Concomitant]
  3. PROGRAF [Concomitant]
  4. PREDNISONE [Concomitant]

REACTIONS (1)
  - Cardiac disorder [Fatal]
